FAERS Safety Report 17206268 (Version 1)
Quarter: 2020Q1

REPORT INFORMATION
  Report Type: Spontaneous
  Country: US (occurrence: US)
  Receive Date: 20191226
  Receipt Date: 20191226
  Transmission Date: 20200409
  Serious: Yes (Life-Threatening)
  Sender: FDA-Public Use
  Company Number: None

PATIENT
  Age: 46 Year
  Sex: Male
  Weight: 81 kg

DRUGS (1)
  1. RELISTOR [Suspect]
     Active Substance: METHYLNALTREXONE BROMIDE
     Indication: CONSTIPATION
     Route: 058
     Dates: start: 20191220, end: 20191222

REACTIONS (6)
  - Abdominal abscess [None]
  - Pneumoperitoneum [None]
  - Gastrointestinal disorder [None]
  - Fistula [None]
  - Large intestine perforation [None]
  - Ascites [None]

NARRATIVE: CASE EVENT DATE: 20191222
